FAERS Safety Report 19765846 (Version 4)
Quarter: 2022Q4

REPORT INFORMATION
  Report Type: Spontaneous
  Country: US (occurrence: US)
  Receive Date: 20210830
  Receipt Date: 20221201
  Transmission Date: 20230112
  Serious: Yes (Hospitalization, Other)
  Sender: FDA-Public Use
  Company Number: US-SA-SAC20210825000780

PATIENT
  Age: 8 Year
  Sex: Male

DRUGS (8)
  1. ALPROLIX [Suspect]
     Active Substance: EFTRENONACOG ALFA
     Indication: Factor IX deficiency
     Dosage: 3000 IU, QW
     Route: 042
     Dates: start: 20191212
  2. ALPROLIX [Suspect]
     Active Substance: EFTRENONACOG ALFA
     Indication: Factor IX deficiency
     Dosage: 3000 IU, QW
     Route: 042
     Dates: start: 20191212
  3. ALPROLIX [Suspect]
     Active Substance: EFTRENONACOG ALFA
     Dosage: 296 U, QW
     Route: 042
     Dates: start: 202104
  4. ALPROLIX [Suspect]
     Active Substance: EFTRENONACOG ALFA
     Dosage: 296 U, QW
     Route: 042
     Dates: start: 202104
  5. ALPROLIX [Suspect]
     Active Substance: EFTRENONACOG ALFA
     Dosage: 2000 U, QW
     Route: 042
  6. ALPROLIX [Suspect]
     Active Substance: EFTRENONACOG ALFA
     Dosage: 2000 U, QW
     Route: 042
  7. ALPROLIX [Suspect]
     Active Substance: EFTRENONACOG ALFA
     Dosage: 3029 IU, QW
     Route: 042
     Dates: start: 20220705
  8. ALPROLIX [Suspect]
     Active Substance: EFTRENONACOG ALFA
     Dosage: 3029 IU, QW
     Route: 042
     Dates: start: 20220705

REACTIONS (8)
  - Mouth haemorrhage [Unknown]
  - Fall [Unknown]
  - Lip injury [Unknown]
  - Tooth injury [Unknown]
  - Gingival injury [Unknown]
  - Haemorrhage [Unknown]
  - Haematoma [Not Recovered/Not Resolved]
  - Tooth loss [Not Recovered/Not Resolved]

NARRATIVE: CASE EVENT DATE: 20210101
